FAERS Safety Report 5572678-0 (Version None)
Quarter: 2007Q4

REPORT INFORMATION
  Report Type: 
  Country: None (occurrence: None)
  Receive Date: 20071222
  Receipt Date: 20071212
  Transmission Date: 20080405
  Serious: Yes (Life-Threatening, Other)
  Sender: FDA-Public Use
  Company Number: GB-PFIZER INC-2007105112

PATIENT
  Age: 29 Year
  Sex: Female

DRUGS (5)
  1. CHANTIX [Suspect]
     Indication: EX-SMOKER
     Route: 048
     Dates: start: 20070917, end: 20070920
  2. DIAZEPAM [Concomitant]
     Route: 048
  3. OLANZAPINE [Concomitant]
     Route: 048
  4. VENLAFAXINE HCL [Concomitant]
     Route: 048
  5. ZOLMITRIPTAN [Concomitant]
     Route: 048

REACTIONS (5)
  - AGITATION [None]
  - DELUSION [None]
  - HYPERHIDROSIS [None]
  - SELF INJURIOUS BEHAVIOUR [None]
  - SELF-INJURIOUS IDEATION [None]
